FAERS Safety Report 9814750 (Version 2)
Quarter: 2014Q1

REPORT INFORMATION
  Report Type: Spontaneous
  Country: US (occurrence: US)
  Receive Date: 20140113
  Receipt Date: 20140114
  Transmission Date: 20141002
  Serious: Yes (Death)
  Sender: FDA-Public Use
  Company Number: US-PFIZER INC-2014006378

PATIENT
  Age: 55 Year
  Sex: Male

DRUGS (5)
  1. ALPRAZOLAM [Suspect]
     Dosage: UNK
  2. VILAZODONE [Suspect]
     Dosage: UNK
  3. SALICYLATE [Suspect]
     Dosage: UNK
  4. ESCITALOPRAM [Suspect]
     Dosage: UNK
  5. DULOXETINE [Suspect]
     Dosage: UNK

REACTIONS (4)
  - Overdose [Fatal]
  - Completed suicide [Fatal]
  - Cardiac arrest [Fatal]
  - Respiratory arrest [Fatal]
